FAERS Safety Report 8515580-4 (Version None)
Quarter: 2012Q3

REPORT INFORMATION
  Report Type: 
  Country: None (occurrence: None)
  Receive Date: 20120717
  Receipt Date: 20120710
  Transmission Date: 20120928
  Serious: Yes (Other)
  Sender: FDA-Public Use
  Company Number: PHHY2012CA033530

PATIENT
  Sex: Female

DRUGS (3)
  1. PERINDOPRIL ERBUMINE [Concomitant]
  2. ZOLEDRONOC ACID [Suspect]
     Indication: OSTEOPOROSIS
     Dosage: UNK UKN, UNK
     Route: 042
     Dates: start: 20120301
  3. ARICEPT [Concomitant]

REACTIONS (6)
  - HYPERTENSION [None]
  - FLUID OVERLOAD [None]
  - DYSURIA [None]
  - APPLICATION SITE DRYNESS [None]
  - ANXIETY [None]
  - BLOOD PRESSURE INCREASED [None]
